FAERS Safety Report 6239678-9 (Version None)
Quarter: 2009Q2

REPORT INFORMATION
  Report Type: 
  Country: None (occurrence: None)
  Receive Date: 20090619
  Receipt Date: 20090610
  Transmission Date: 20091009
  Serious: Yes (Other)
  Sender: FDA-Public Use
  Company Number: 2009SP012725

PATIENT
  Age: 6 Month

DRUGS (2)
  1. CELESTAMINE TAB [Suspect]
     Indication: BRONCHITIS
     Dosage: 1 ML; INH
     Route: 055
  2. CELESTAMINE TAB [Suspect]
     Indication: OFF LABEL USE
     Dosage: 1 ML; INH
     Route: 055

REACTIONS (5)
  - ACCIDENTAL DRUG INTAKE BY CHILD [None]
  - BRONCHITIS [None]
  - CREPITATIONS [None]
  - OFF LABEL USE [None]
  - RHONCHI [None]
